FAERS Safety Report 7843719-2 (Version None)
Quarter: 2011Q4

REPORT INFORMATION
  Report Type: 
  Country: None (occurrence: None)
  Receive Date: 20111025
  Receipt Date: 20111011
  Transmission Date: 20120403
  Serious: Yes (Hospitalization)
  Sender: FDA-Public Use
  Company Number: NL-CELGENEUS-114-20785-11093770

PATIENT
  Sex: Male
  Weight: 78 kg

DRUGS (7)
  1. METOPROLOL TARTRATE [Concomitant]
     Indication: HYPERTENSION
     Route: 048
     Dates: start: 20080501
  2. THALIDOMIDE [Suspect]
     Dosage: 50 MILLIGRAM
     Route: 048
     Dates: start: 20110930, end: 20111010
  3. MELPHALAN HYDROCHLORIDE [Suspect]
     Indication: MULTIPLE MYELOMA
     Route: 065
     Dates: start: 20110928
  4. ASCAL [Concomitant]
     Indication: PROPHYLAXIS
     Route: 048
     Dates: start: 20110829
  5. THALIDOMIDE [Suspect]
     Indication: MULTIPLE MYELOMA
     Dosage: 100 MILLIGRAM
     Route: 048
     Dates: start: 20110928, end: 20110929
  6. DIOVAN HCT [Concomitant]
     Indication: HYPERTENSION
     Dosage: 80/12.5 MG
     Route: 048
     Dates: start: 20060601
  7. PREDNISONE [Suspect]
     Indication: MULTIPLE MYELOMA
     Route: 065
     Dates: start: 20110928

REACTIONS (2)
  - ACUTE CORONARY SYNDROME [None]
  - DIZZINESS [None]
